FAERS Safety Report 5978828-6 (Version None)
Quarter: 2008Q4

REPORT INFORMATION
  Report Type: 
  Country: None (occurrence: None)
  Receive Date: 20081204
  Receipt Date: 20081126
  Transmission Date: 20090506
  Serious: Yes (Other)
  Sender: FDA-Public Use
  Company Number: PHHY2008CY29705

PATIENT
  Age: 66 Year
  Sex: Female

DRUGS (1)
  1. ZOMETA [Suspect]
     Indication: PROPHYLAXIS
     Dosage: 4 MG, QMO
     Route: 042

REACTIONS (3)
  - GINGIVAL BLISTER [None]
  - GINGIVAL SWELLING [None]
  - OSTEONECROSIS [None]
